FAERS Safety Report 23970585 (Version 1)
Quarter: 2024Q2

REPORT INFORMATION
  Report Type: Report from Study
  Country: IN (occurrence: IN)
  Receive Date: 20240613
  Receipt Date: 20240613
  Transmission Date: 20240716
  Serious: Yes (Death)
  Sender: FDA-Public Use
  Company Number: IN-002147023-NVSC2020IN145658

PATIENT
  Age: 60 Year
  Sex: Male

DRUGS (1)
  1. CERTICAN [Suspect]
     Active Substance: EVEROLIMUS
     Indication: Liver transplant
     Dosage: 0.5 MG, BID
     Route: 048
     Dates: start: 20200106, end: 20200510

REACTIONS (2)
  - Post procedural infection [Fatal]
  - Pain [Unknown]

NARRATIVE: CASE EVENT DATE: 20200506
